FAERS Safety Report 8560861-1 (Version None)
Quarter: 2012Q3

REPORT INFORMATION
  Report Type: 
  Country: None (occurrence: None)
  Receive Date: 20120802
  Receipt Date: 20120730
  Transmission Date: 20120928
  Serious: Yes (Life-Threatening, Hospitalization, Disabling)
  Sender: FDA-Public Use
  Company Number: DE-B.I. PHARMACEUTICALS,INC./RIDGEFIELD-2012-DE-01702DE

PATIENT
  Sex: Female
  Weight: 59 kg

DRUGS (3)
  1. MEDICATION FOR HYPOTHYREOSIS [Concomitant]
  2. PRADAXA [Suspect]
     Indication: INTERNATIONAL NORMALISED RATIO
     Dosage: 300 MG
     Dates: start: 20120428, end: 20120505
  3. PRADAXA [Suspect]
     Dosage: 220 MG
     Route: 048
     Dates: start: 20120507, end: 20120513

REACTIONS (7)
  - DIVERTICULUM INTESTINAL [None]
  - MALAISE [None]
  - GASTROINTESTINAL HAEMORRHAGE [None]
  - HAEMORRHAGIC ANAEMIA [None]
  - MONOPLEGIA [None]
  - NAUSEA [None]
  - ISCHAEMIC STROKE [None]
